FAERS Safety Report 23367440 (Version 2)
Quarter: 2024Q1

REPORT INFORMATION
  Report Type: Spontaneous
  Country: US (occurrence: US)
  Receive Date: 20240104
  Receipt Date: 20240131
  Transmission Date: 20240409
  Serious: No
  Sender: FDA-Public Use
  Company Number: US-MYLANLABS-2023M1136894

PATIENT
  Sex: Female

DRUGS (21)
  1. TYRVAYA [Suspect]
     Active Substance: VARENICLINE TARTRATE
     Indication: Product used for unknown indication
     Dosage: UNK, BID (SPRAY TOWARD OUTSIDE OF  EACH NOSTRIL, TWICE DAILY)
     Route: 065
  2. MOUNJARO [Concomitant]
     Active Substance: TIRZEPATIDE
     Dosage: 12.5 MILLIGRAM, QW
     Route: 065
  3. GABAPENTIN [Concomitant]
     Active Substance: GABAPENTIN
     Dosage: (100-200 MILLIGRAM, BEFORE BED)
     Route: 065
  4. HYDROXYCHLOROQUINE [Concomitant]
     Active Substance: HYDROXYCHLOROQUINE
     Dosage: 200 MILLIGRAM, BID (TWICE DAILY ON FULL STOMACH)
     Route: 065
  5. PREDNISONE [Concomitant]
     Active Substance: PREDNISONE
     Dosage: 1 MILLIGRAM (4 ONCE DAILY)
     Route: 065
  6. ROSUVASTATIN [Concomitant]
     Active Substance: ROSUVASTATIN
     Dosage: 10 MILLIGRAM (AM)
     Route: 065
  7. DULOXETINE [Concomitant]
     Active Substance: DULOXETINE
     Dosage: 60 MILLIGRAM, BID
     Route: 065
  8. ALLOPURINOL [Concomitant]
     Active Substance: ALLOPURINOL
     Dosage: 100 MILLIGRAM (AM)
     Route: 065
  9. OMEPRAZOLE [Concomitant]
     Active Substance: OMEPRAZOLE
     Indication: Product used for unknown indication
     Dosage: 40 MILLIGRAM (AM)
     Route: 065
  10. CEQUA [Concomitant]
     Active Substance: CYCLOSPORINE
     Dosage: 1 DOSAGE FORM, BID (1 DROP EACH EYE, DAILY)
     Route: 065
  11. SYMBICORT [Concomitant]
     Active Substance: BUDESONIDE\FORMOTEROL FUMARATE DIHYDRATE
     Dosage: 1 DOSAGE FORM, BID (2 PUFFS, DAILY)
     Route: 065
  12. VOLTAREN [Concomitant]
     Active Substance: DICLOFENAC SODIUM
     Dosage: UNK, PRN
     Route: 065
  13. TYLENOL [Concomitant]
     Active Substance: ACETAMINOPHEN
     Dosage: 625 MILLIGRAM, PRN
     Route: 065
  14. RETAINE CMC [Concomitant]
     Dosage: (UP TO 3-4 X DAILY (EYE DROPS))
     Route: 065
  15. ZYRTEC [Concomitant]
     Active Substance: CETIRIZINE HYDROCHLORIDE
     Dosage: (2-10  MG IN AM)
     Route: 065
  16. METAMUCIL [Concomitant]
     Active Substance: PLANTAGO SEED
     Indication: Irritable bowel syndrome
     Dosage: UNK, QD (AFTER LUNCH)
     Route: 065
  17. COENZYME Q10 [Concomitant]
     Active Substance: DIETARY SUPPLEMENT\UBIDECARENONE
     Dosage: 200 MILLIGRAM
     Route: 065
  18. VITAMIN B12 [Concomitant]
     Active Substance: CYANOCOBALAMIN
     Dosage: 1000 MICROGRAM
     Route: 065
  19. VITAMIN D3 [Concomitant]
     Active Substance: CHOLECALCIFEROL
     Dosage: 25 MICROGRAM
     Route: 065
  20. CHONDROITIN SULFATE (BOVINE)\GLUCOSAMINE HYDROCHLORIDE [Concomitant]
     Active Substance: CHONDROITIN SULFATE (BOVINE)\GLUCOSAMINE HYDROCHLORIDE
     Dosage: (1 CAPLETS DAILY, 1 PM)
     Route: 065
  21. SIMPONI ARIA [Concomitant]
     Active Substance: GOLIMUMAB
     Indication: Rheumatoid arthritis
     Dosage: (FOR RA EVERY 2 MONTHS)
     Route: 065

REACTIONS (2)
  - Nasal discomfort [Unknown]
  - Throat irritation [Unknown]
